FAERS Safety Report 8473497-8 (Version None)
Quarter: 2012Q2

REPORT INFORMATION
  Report Type: 
  Country: None (occurrence: None)
  Receive Date: 20120622
  Receipt Date: 20120622
  Transmission Date: 20120825
  Serious: Yes (Other)
  Sender: FDA-Public Use
  Company Number: None

PATIENT
  Age: 27 Year
  Sex: Female
  Weight: 137.8935 kg

DRUGS (1)
  1. ORTHO EVRA [Suspect]
     Indication: MENSTRUAL DISORDER
     Dosage: 1 PATCH WEEKLY OTHER
     Route: 050
     Dates: start: 20100110, end: 20110930

REACTIONS (10)
  - OEDEMA PERIPHERAL [None]
  - THROMBOSIS [None]
  - PULSE ABSENT [None]
  - GAIT DISTURBANCE [None]
  - BACK PAIN [None]
  - DYSSTASIA [None]
  - IMPAIRED WORK ABILITY [None]
  - SKIN DISCOLOURATION [None]
  - MUSCLE STRAIN [None]
  - POST THROMBOTIC SYNDROME [None]
